FAERS Safety Report 6071114-8 (Version None)
Quarter: 2009Q1

REPORT INFORMATION
  Report Type: 
  Country: None (occurrence: None)
  Receive Date: 20090209
  Receipt Date: 20080729
  Transmission Date: 20090719
  Serious: No
  Sender: FDA-Public Use
  Company Number: A0739891A

PATIENT
  Age: 52 Year
  Sex: Female

DRUGS (3)
  1. PAXIL [Suspect]
     Dosage: 7CC PER DAY
     Route: 048
     Dates: start: 20080701
  2. ATIVAN [Concomitant]
  3. PREVACID [Concomitant]

REACTIONS (1)
  - OESOPHAGEAL HYPOMOTILITY [None]
